FAERS Safety Report 6886314-4 (Version None)
Quarter: 2010Q3

REPORT INFORMATION
  Report Type: 
  Country: None (occurrence: None)
  Receive Date: 20100729
  Receipt Date: 20080409
  Transmission Date: 20110219
  Serious: Yes (Other)
  Sender: FDA-Public Use
  Company Number: US-PFIZER INC-2008031249

PATIENT
  Sex: Female
  Weight: 72.727 kg

DRUGS (5)
  1. CELEBREX [Suspect]
     Indication: RHEUMATOID ARTHRITIS
     Dates: start: 20080322, end: 20080406
  2. BENADRYL [Suspect]
     Indication: RASH
  3. PREDNISONE [Concomitant]
  4. ACETAMINOPHEN [Concomitant]
  5. ALBUTEROL [Concomitant]
     Route: 055

REACTIONS (1)
  - RASH [None]
